FAERS Safety Report 20144366 (Version 1)
Quarter: 2021Q4

REPORT INFORMATION
  Report Type: Spontaneous
  Country: US (occurrence: None)
  Receive Date: 20211202
  Receipt Date: 20211202
  Transmission Date: 20220304
  Serious: No
  Sender: FDA-Public Use
  Company Number: None

PATIENT
  Age: 72 Year
  Sex: Male

DRUGS (1)
  1. AMBRISENTAN [Suspect]
     Active Substance: AMBRISENTAN
     Dosage: OTHER FREQUENCY : OTHER;?
     Route: 048
     Dates: start: 202006

REACTIONS (2)
  - Back pain [None]
  - Atrial fibrillation [None]

NARRATIVE: CASE EVENT DATE: 20211115
